FAERS Safety Report 4733097-X (Version None)
Quarter: 2005Q3

REPORT INFORMATION
  Report Type: 
  Country: None (occurrence: None)
  Receive Date: 20050725
  Receipt Date: 20040816
  Transmission Date: 20060218
  Serious: Yes (Death)
  Sender: FDA-Public Use
  Company Number: USA-2004-0016422

PATIENT
  Age: 44 Year
  Sex: Male

DRUGS (1)
  1. MS CONTIN [Suspect]
     Indication: PAIN
     Dosage: 60 MG, BID

REACTIONS (1)
  - OVERDOSE [None]
